FAERS Safety Report 4945561-9 (Version None)
Quarter: 2006Q1

REPORT INFORMATION
  Report Type: 
  Country: None (occurrence: None)
  Receive Date: 20060117
  Receipt Date: 20051027
  Transmission Date: 20060701
  Serious: Yes (Hospitalization)
  Sender: FDA-Public Use
  Company Number: A03200503442

PATIENT
  Age: 40 Year
  Sex: Female

DRUGS (6)
  1. PLAVIX [Suspect]
     Dosage: ORAL
     Route: 048
  2. COREG [Suspect]
     Dosage: ORAL
     Route: 048
  3. ASPIRIN [Suspect]
     Dosage: ORAL
     Route: 048
  4. WARFARIN [Concomitant]
  5. LISINOPRIL [Concomitant]
  6. SIMVASTATIN [Concomitant]

REACTIONS (1)
  - SYNCOPE [None]
